FAERS Safety Report 7885366-2 (Version None)
Quarter: 2011Q4

REPORT INFORMATION
  Report Type: 
  Country: None (occurrence: None)
  Receive Date: 20111102
  Receipt Date: 20111027
  Transmission Date: 20120403
  Serious: No
  Sender: FDA-Public Use
  Company Number: US-PFIZER INC-2011263914

PATIENT
  Sex: Female

DRUGS (7)
  1. XANAX [Suspect]
     Dosage: 2 MG DAILY
  2. CICLESONIDE [Suspect]
     Indication: SINUSITIS
     Dosage: 200 UG, 2 SPRAYS IN EACH NOSTRIL DAILY
     Route: 045
     Dates: start: 20110609
  3. LEVOTHYROXINE [Concomitant]
     Dosage: UNK
  4. SIMVASTATIN [Concomitant]
     Dosage: UNK
  5. METOPROLOL [Concomitant]
     Dosage: UNK
  6. WARFARIN [Concomitant]
     Dosage: UNK
  7. FELODIPINE [Concomitant]
     Dosage: UNK

REACTIONS (1)
  - SOMNOLENCE [None]
